FAERS Safety Report 4323946-1 (Version None)
Quarter: 2004Q1

REPORT INFORMATION
  Report Type: 
  Country: None (occurrence: None)
  Receive Date: 20040323
  Receipt Date: 20040308
  Transmission Date: 20041129
  Serious: Yes (Hospitalization)
  Sender: FDA-Public Use
  Company Number: 2004-DE-01108GD

PATIENT
  Age: 42 Year
  Sex: Female

DRUGS (2)
  1. AZATHIOPRINE (AZATHIOPRINE) [Suspect]
     Indication: IMMUNOSUPPRESSION
     Dosage: 100 MG
  2. INFLIXIMAB (INFLIXIMAB) [Suspect]
     Indication: CROHN'S DISEASE
     Dosage: 5 MG/KG AS 2-H IV INFUSION
     Route: 042

REACTIONS (2)
  - DEHYDRATION [None]
  - GASTROENTERITIS VIRAL [None]
